FAERS Safety Report 5099810-X (Version None)
Quarter: 2006Q3

REPORT INFORMATION
  Report Type: 
  Country: None (occurrence: None)
  Receive Date: 20060908
  Receipt Date: 20060814
  Transmission Date: 20061208
  Serious: Yes (Hospitalization)
  Sender: FDA-Public Use
  Company Number: SEWYE736318AUG06

PATIENT
  Sex: Female

DRUGS (3)
  1. ENBREL [Suspect]
     Indication: RHEUMATOID ARTHRITIS
     Route: 058
     Dates: start: 20040617
  2. PREDNISOLONE [Concomitant]
  3. ACETYLCYSTEINE [Concomitant]

REACTIONS (1)
  - ATRIAL FIBRILLATION [None]
